FAERS Safety Report 8574033-8 (Version None)
Quarter: 2012Q3

REPORT INFORMATION
  Report Type: 
  Country: None (occurrence: None)
  Receive Date: 20120806
  Receipt Date: 20120724
  Transmission Date: 20120928
  Serious: Yes (Death, Life-Threatening)
  Sender: FDA-Public Use
  Company Number: JP-ELI_LILLY_AND_COMPANY-JP201207007897

PATIENT
  Sex: Male

DRUGS (16)
  1. LANSOPRAZOLE [Concomitant]
     Indication: PROPHYLAXIS
     Dosage: UNK
     Route: 048
     Dates: start: 20120528, end: 20120703
  2. VOLTAREN [Concomitant]
     Indication: CANCER PAIN
     Dosage: UNK
     Route: 048
     Dates: start: 20120626
  3. OXYCONTIN [Concomitant]
     Dosage: UNK
     Route: 048
     Dates: start: 20120625
  4. ETODOLAC [Concomitant]
     Indication: CANCER PAIN
     Dosage: UNK
     Route: 048
     Dates: start: 20120528, end: 20120703
  5. OXYCONTIN [Concomitant]
     Indication: CANCER PAIN
     Dosage: UNK
     Route: 048
     Dates: start: 20120616, end: 20120617
  6. MAGMITT [Concomitant]
     Indication: PROPHYLAXIS
     Dosage: UNK
     Route: 048
     Dates: start: 20120623, end: 20120703
  7. ZOMETA [Concomitant]
     Dosage: UNK
     Route: 065
     Dates: start: 20120628, end: 20120628
  8. OXYCONTIN [Concomitant]
     Dosage: UNK
     Route: 048
     Dates: start: 20120623, end: 20120624
  9. OXINORM                            /00045603/ [Concomitant]
     Indication: CANCER PAIN
     Dosage: UNK
     Route: 048
     Dates: start: 20120615, end: 20120617
  10. OXINORM                            /00045603/ [Concomitant]
     Dosage: UNK
     Route: 048
     Dates: start: 20120618, end: 20120704
  11. LASIX [Concomitant]
     Dosage: UNK
     Route: 065
     Dates: start: 20120630, end: 20120701
  12. OXYCONTIN [Concomitant]
     Dosage: UNK
     Route: 048
     Dates: start: 20120618, end: 20120622
  13. FLOMOX [Concomitant]
     Dosage: UNK
     Route: 048
     Dates: start: 20120618, end: 20120621
  14. VOLTAREN [Concomitant]
     Dosage: UNK
     Route: 061
     Dates: start: 20120528
  15. CYMBALTA [Suspect]
     Indication: CANCER PAIN
     Dosage: UNK
     Route: 048
     Dates: start: 20120625, end: 20120703
  16. LYRICA [Concomitant]
     Indication: CANCER PAIN
     Dosage: UNK
     Route: 048
     Dates: start: 20120620, end: 20120624

REACTIONS (3)
  - SOMNOLENCE [None]
  - OFF LABEL USE [None]
  - PNEUMONIA ASPIRATION [None]
